FAERS Safety Report 12323519 (Version 3)
Quarter: 2016Q2

REPORT INFORMATION
  Report Type: Report from Study
  Country: IT (occurrence: IT)
  Receive Date: 20160502
  Receipt Date: 20160519
  Transmission Date: 20160815
  Serious: Yes (Life-Threatening, Hospitalization, Other)
  Sender: FDA-Public Use
  Company Number: PHHY2016IT057942

PATIENT
  Age: 59 Year
  Sex: Male

DRUGS (8)
  1. TAZOBACTAM [Concomitant]
     Active Substance: TAZOBACTAM
     Indication: URINARY TRACT INFECTION
     Dosage: 04 MG, QD
     Route: 065
  2. TRAMETINIB [Suspect]
     Active Substance: TRAMETINIB
     Indication: METASTATIC MALIGNANT MELANOMA
     Dosage: 2 MG, QD
     Route: 048
     Dates: start: 20160223, end: 20160421
  3. ENOXAPARIN [Concomitant]
     Active Substance: ENOXAPARIN
     Indication: PRODUCT USED FOR UNKNOWN INDICATION
     Dosage: 2000 IU, QD
     Route: 065
  4. DABRAFENIB [Suspect]
     Active Substance: DABRAFENIB
     Indication: METASTATIC MALIGNANT MELANOMA
     Dosage: 300 MG, QD
     Route: 048
     Dates: start: 20160223, end: 20160421
  5. PIPERACILLIN [Concomitant]
     Active Substance: PIPERACILLIN
     Indication: URINARY TRACT INFECTION
     Dosage: 4.5 G, QD
     Route: 065
  6. METFORMIN [Concomitant]
     Active Substance: METFORMIN HYDROCHLORIDE
     Indication: PRODUCT USED FOR UNKNOWN INDICATION
     Dosage: 01 DF, BID
     Route: 065
  7. DOBUTAMINE [Concomitant]
     Active Substance: DOBUTAMINE\DOBUTAMINE HYDROCHLORIDE
     Indication: PRODUCT USED FOR UNKNOWN INDICATION
     Route: 065
  8. CLEXANE [Concomitant]
     Active Substance: ENOXAPARIN SODIUM
     Indication: PRODUCT USED FOR UNKNOWN INDICATION
     Dosage: 4000 UN, UNK
     Route: 058

REACTIONS (19)
  - Hyperpyrexia [Not Recovered/Not Resolved]
  - Septic shock [Unknown]
  - Confusional state [Unknown]
  - Dysarthria [Unknown]
  - Activated partial thromboplastin time prolonged [Unknown]
  - Bronchospasm [Unknown]
  - Thrombocytopenia [Unknown]
  - Coagulopathy [Unknown]
  - Polyuria [Unknown]
  - Pancytopenia [Not Recovered/Not Resolved]
  - Prothrombin time prolonged [Unknown]
  - Pollakiuria [Unknown]
  - Transaminases increased [Unknown]
  - Apraxia [Unknown]
  - Disseminated intravascular coagulation [Unknown]
  - Fibrin D dimer increased [Unknown]
  - Delirium [Not Recovered/Not Resolved]
  - Multiple organ dysfunction syndrome [Unknown]
  - Hypovolaemic shock [Unknown]

NARRATIVE: CASE EVENT DATE: 20160421
